FAERS Safety Report 22343621 (Version 4)
Quarter: 2023Q4

REPORT INFORMATION
  Report Type: Report from Study
  Country: ES (occurrence: ES)
  Receive Date: 20230519
  Receipt Date: 20231221
  Transmission Date: 20240110
  Serious: Yes (Hospitalization, Other)
  Sender: FDA-Public Use
  Company Number: ES-TAKEDA-2022TUS091759

PATIENT
  Age: 3 Year
  Sex: Male

DRUGS (16)
  1. TEDUGLUTIDE [Suspect]
     Active Substance: TEDUGLUTIDE
     Indication: Short-bowel syndrome
     Dosage: 0.3 MILLIGRAM, QD
     Route: 042
     Dates: start: 202109, end: 20220425
  2. TEDUGLUTIDE [Suspect]
     Active Substance: TEDUGLUTIDE
     Indication: Short-bowel syndrome
     Dosage: 0.3 MILLIGRAM, QD
     Route: 042
     Dates: start: 202109, end: 20220425
  3. TEDUGLUTIDE [Suspect]
     Active Substance: TEDUGLUTIDE
     Indication: Short-bowel syndrome
     Dosage: 0.3 MILLIGRAM, QD
     Route: 042
     Dates: start: 202109, end: 20220425
  4. TEDUGLUTIDE [Suspect]
     Active Substance: TEDUGLUTIDE
     Indication: Short-bowel syndrome
     Dosage: 0.3 MILLIGRAM, QD
     Route: 042
     Dates: start: 202109, end: 20220425
  5. TEDUGLUTIDE [Suspect]
     Active Substance: TEDUGLUTIDE
     Dosage: 0.35 MILLIGRAM, QD
     Route: 042
     Dates: start: 20220425
  6. TEDUGLUTIDE [Suspect]
     Active Substance: TEDUGLUTIDE
     Dosage: 0.35 MILLIGRAM, QD
     Route: 042
     Dates: start: 20220425
  7. TEDUGLUTIDE [Suspect]
     Active Substance: TEDUGLUTIDE
     Dosage: 0.35 MILLIGRAM, QD
     Route: 042
     Dates: start: 20220425
  8. TEDUGLUTIDE [Suspect]
     Active Substance: TEDUGLUTIDE
     Dosage: 0.35 MILLIGRAM, QD
     Route: 042
     Dates: start: 20220425
  9. ENOXAPARIN SODIUM [Concomitant]
     Active Substance: ENOXAPARIN SODIUM
     Indication: Coagulopathy
     Dosage: 10 MILLIGRAM, BID
     Route: 058
     Dates: start: 20221120
  10. Glutaferro [Concomitant]
     Indication: Iron deficiency anaemia
     Dosage: 1 MILLILITER, QD
     Route: 048
     Dates: start: 20220629, end: 20221120
  11. HIBOR [Concomitant]
     Indication: Thrombosis
     Dosage: 1300 INTERNATIONAL UNIT
     Route: 042
     Dates: start: 20210620, end: 20221120
  12. HIBOR [Concomitant]
     Dosage: 1150 INTERNATIONAL UNIT, QD
     Route: 058
     Dates: start: 20230825, end: 20231113
  13. HIBOR [Concomitant]
     Dosage: 2500 INTERNATIONAL UNIT, QD
     Route: 058
     Dates: start: 20231110
  14. CLOXACILLIN [Concomitant]
     Active Substance: CLOXACILLIN
     Indication: Vascular device infection
     Dosage: UNK
     Route: 042
     Dates: start: 20230306, end: 20230519
  15. IRON [Concomitant]
     Active Substance: IRON
     Indication: Iron deficiency
     Dosage: UNK UNK, Q2WEEKS
     Route: 042
     Dates: start: 202211
  16. AMPHOTERICIN B [Concomitant]
     Active Substance: AMPHOTERICIN B
     Indication: Vascular device infection
     Dosage: UNK
     Route: 065
     Dates: start: 20210609, end: 20210627

REACTIONS (3)
  - Vascular device infection [Recovered/Resolved]
  - Hypokalaemia [Recovered/Resolved]
  - Venous thrombosis [Not Recovered/Not Resolved]

NARRATIVE: CASE EVENT DATE: 20221121
